FAERS Safety Report 11009491 (Version 1)
Quarter: 2015Q2

REPORT INFORMATION
  Report Type: Spontaneous
  Country: US (occurrence: None)
  Receive Date: 20150409
  Receipt Date: 20150409
  Transmission Date: 20150821
  Serious: Yes (Other)
  Sender: FDA-Public Use
  Company Number: None

PATIENT
  Age: 67 Year
  Sex: Male
  Weight: 111.13 kg

DRUGS (6)
  1. AVAPRO [Concomitant]
     Active Substance: IRBESARTAN
  2. CENTRUM SENIOR OVER 50 [Concomitant]
  3. AMLODIPINE [Concomitant]
     Active Substance: AMLODIPINE BESYLATE
  4. HYDROCHLORIZIDE [Concomitant]
  5. CELECOXIB, 220MG [Suspect]
     Active Substance: CELECOXIB
     Indication: ARTHRITIS
     Route: 048
  6. TOPROL XL [Concomitant]
     Active Substance: METOPROLOL SUCCINATE

REACTIONS (4)
  - Joint swelling [None]
  - Back pain [None]
  - Arthritis [None]
  - Arthralgia [None]

NARRATIVE: CASE EVENT DATE: 20150401
